FAERS Safety Report 6699835-4 (Version None)
Quarter: 2010Q2

REPORT INFORMATION
  Report Type: 
  Country: None (occurrence: None)
  Receive Date: 20100427
  Receipt Date: 20100427
  Transmission Date: 20101027
  Serious: Yes (Disabling)
  Sender: FDA-Public Use
  Company Number: None

PATIENT
  Sex: Female
  Weight: 80.7403 kg

DRUGS (1)
  1. DIOVAN HCT [Suspect]
     Indication: HYPERTENSION
     Dosage: 1 1/DAY MOUTH SEV. YRS NOW
     Route: 048

REACTIONS (10)
  - ASTHENIA [None]
  - BALANCE DISORDER [None]
  - HYPOAESTHESIA [None]
  - INSOMNIA [None]
  - JOINT INSTABILITY [None]
  - JOINT SPRAIN [None]
  - MUSCULAR WEAKNESS [None]
  - PAIN [None]
  - PAIN IN EXTREMITY [None]
  - PARAESTHESIA [None]
